FAERS Safety Report 23663499 (Version 13)
Quarter: 2024Q2

REPORT INFORMATION
  Report Type: Spontaneous
  Country: GB (occurrence: None)
  Receive Date: 20240322
  Receipt Date: 20240625
  Transmission Date: 20240715
  Serious: Yes (Other)
  Sender: FDA-Public Use
  Company Number: GB-SANDOZ-SDZ2023GB048792

PATIENT
  Sex: Male

DRUGS (152)
  1. METHOTREXATE [Suspect]
     Active Substance: METHOTREXATE
     Indication: Psoriasis
  2. METHOTREXATE [Suspect]
     Active Substance: METHOTREXATE
  3. METHOTREXATE [Suspect]
     Active Substance: METHOTREXATE
  4. METHOTREXATE [Suspect]
     Active Substance: METHOTREXATE
  5. METHOTREXATE [Suspect]
     Active Substance: METHOTREXATE
  6. METHOTREXATE [Suspect]
     Active Substance: METHOTREXATE
  7. METHOTREXATE [Suspect]
     Active Substance: METHOTREXATE
  8. ACITRETIN [Suspect]
     Active Substance: ACITRETIN
     Indication: Psoriasis
  9. ACITRETIN [Suspect]
     Active Substance: ACITRETIN
  10. ACITRETIN [Suspect]
     Active Substance: ACITRETIN
  11. ACITRETIN [Suspect]
     Active Substance: ACITRETIN
  12. ACITRETIN [Suspect]
     Active Substance: ACITRETIN
  13. ACITRETIN [Suspect]
     Active Substance: ACITRETIN
  14. ACITRETIN [Suspect]
     Active Substance: ACITRETIN
  15. ACITRETIN [Suspect]
     Active Substance: ACITRETIN
  16. ACITRETIN [Suspect]
     Active Substance: ACITRETIN
  17. ACITRETIN [Suspect]
     Active Substance: ACITRETIN
  18. ACITRETIN [Suspect]
     Active Substance: ACITRETIN
  19. ACITRETIN [Suspect]
     Active Substance: ACITRETIN
  20. ACITRETIN [Suspect]
     Active Substance: ACITRETIN
  21. ACITRETIN [Suspect]
     Active Substance: ACITRETIN
  22. ACITRETIN [Suspect]
     Active Substance: ACITRETIN
  23. ACITRETIN [Suspect]
     Active Substance: ACITRETIN
  24. ACITRETIN [Suspect]
     Active Substance: ACITRETIN
  25. ACITRETIN [Suspect]
     Active Substance: ACITRETIN
  26. ACITRETIN [Suspect]
     Active Substance: ACITRETIN
  27. ACITRETIN [Suspect]
     Active Substance: ACITRETIN
  28. ACITRETIN [Suspect]
     Active Substance: ACITRETIN
  29. ACITRETIN [Suspect]
     Active Substance: ACITRETIN
  30. ACITRETIN [Suspect]
     Active Substance: ACITRETIN
  31. ACITRETIN [Suspect]
     Active Substance: ACITRETIN
  32. ACITRETIN [Suspect]
     Active Substance: ACITRETIN
  33. ACITRETIN [Suspect]
     Active Substance: ACITRETIN
  34. ACITRETIN [Suspect]
     Active Substance: ACITRETIN
  35. ACITRETIN [Suspect]
     Active Substance: ACITRETIN
  36. CYCLOSPORINE [Suspect]
     Active Substance: CYCLOSPORINE
     Indication: Psoriasis
  37. CYCLOSPORINE [Suspect]
     Active Substance: CYCLOSPORINE
  38. CYCLOSPORINE [Suspect]
     Active Substance: CYCLOSPORINE
  39. CYCLOSPORINE [Suspect]
     Active Substance: CYCLOSPORINE
  40. CYCLOSPORINE [Suspect]
     Active Substance: CYCLOSPORINE
  41. CYCLOSPORINE [Suspect]
     Active Substance: CYCLOSPORINE
  42. CYCLOSPORINE [Suspect]
     Active Substance: CYCLOSPORINE
  43. CYCLOSPORINE [Suspect]
     Active Substance: CYCLOSPORINE
  44. CYCLOSPORINE [Suspect]
     Active Substance: CYCLOSPORINE
  45. CYCLOSPORINE [Suspect]
     Active Substance: CYCLOSPORINE
  46. CYCLOSPORINE [Suspect]
     Active Substance: CYCLOSPORINE
  47. CYCLOSPORINE [Suspect]
     Active Substance: CYCLOSPORINE
  48. CYCLOSPORINE [Suspect]
     Active Substance: CYCLOSPORINE
  49. CYCLOSPORINE [Suspect]
     Active Substance: CYCLOSPORINE
  50. COCODAMOL [Suspect]
     Active Substance: ACETAMINOPHEN\CODEINE PHOSPHATE
     Indication: Product used for unknown indication
     Dosage: STRENGTH: 30/500MG
  51. COCODAMOL [Suspect]
     Active Substance: ACETAMINOPHEN\CODEINE PHOSPHATE
  52. COCODAMOL [Suspect]
     Active Substance: ACETAMINOPHEN\CODEINE PHOSPHATE
     Dosage: STRENGTH: 30/500MG
  53. COCODAMOL [Suspect]
     Active Substance: ACETAMINOPHEN\CODEINE PHOSPHATE
     Dosage: STRENGTH: 30/500MG;
  54. COCODAMOL [Suspect]
     Active Substance: ACETAMINOPHEN\CODEINE PHOSPHATE
  55. COCODAMOL [Suspect]
     Active Substance: ACETAMINOPHEN\CODEINE PHOSPHATE
  56. COCODAMOL [Suspect]
     Active Substance: ACETAMINOPHEN\CODEINE PHOSPHATE
  57. COCODAMOL [Suspect]
     Active Substance: ACETAMINOPHEN\CODEINE PHOSPHATE
  58. COCODAMOL [Suspect]
     Active Substance: ACETAMINOPHEN\CODEINE PHOSPHATE
  59. COCODAMOL [Suspect]
     Active Substance: ACETAMINOPHEN\CODEINE PHOSPHATE
     Dosage: TIME INTERVAL: 0.33333333 DAYS, 30/500MG
  60. COCODAMOL [Suspect]
     Active Substance: ACETAMINOPHEN\CODEINE PHOSPHATE
     Dosage: STRENGTH: 30/500MG
  61. COCODAMOL [Suspect]
     Active Substance: ACETAMINOPHEN\CODEINE PHOSPHATE
  62. COCODAMOL [Suspect]
     Active Substance: ACETAMINOPHEN\CODEINE PHOSPHATE
     Dosage: STRENGTH: 30/500MG
  63. COCODAMOL [Suspect]
     Active Substance: ACETAMINOPHEN\CODEINE PHOSPHATE
  64. COCODAMOL [Suspect]
     Active Substance: ACETAMINOPHEN\CODEINE PHOSPHATE
  65. COCODAMOL [Suspect]
     Active Substance: ACETAMINOPHEN\CODEINE PHOSPHATE
     Dosage: 6 DF, QD (2 DOSAGE FORM, TID (30/500MG 2 TABLETS TDS)
  66. COSENTYX [Suspect]
     Active Substance: SECUKINUMAB
     Indication: Product used for unknown indication
  67. COSENTYX [Suspect]
     Active Substance: SECUKINUMAB
  68. COSENTYX [Suspect]
     Active Substance: SECUKINUMAB
  69. COSENTYX [Suspect]
     Active Substance: SECUKINUMAB
  70. COSENTYX [Suspect]
     Active Substance: SECUKINUMAB
  71. COSENTYX [Suspect]
     Active Substance: SECUKINUMAB
  72. COSENTYX [Suspect]
     Active Substance: SECUKINUMAB
  73. COSENTYX [Suspect]
     Active Substance: SECUKINUMAB
  74. COSENTYX [Suspect]
     Active Substance: SECUKINUMAB
  75. COSENTYX [Suspect]
     Active Substance: SECUKINUMAB
  76. COSENTYX [Suspect]
     Active Substance: SECUKINUMAB
  77. COSENTYX [Suspect]
     Active Substance: SECUKINUMAB
  78. COSENTYX [Suspect]
     Active Substance: SECUKINUMAB
  79. COSENTYX [Suspect]
     Active Substance: SECUKINUMAB
  80. COSENTYX [Suspect]
     Active Substance: SECUKINUMAB
  81. COSENTYX [Suspect]
     Active Substance: SECUKINUMAB
  82. COSENTYX [Suspect]
     Active Substance: SECUKINUMAB
  83. BETAMETHASONE DIPROPIONATE\CALCIPOTRIENE MONOHYDRATE [Suspect]
     Active Substance: BETAMETHASONE DIPROPIONATE\CALCIPOTRIENE MONOHYDRATE
     Indication: Product used for unknown indication
     Dosage: RARELY, QV
  84. BETAMETHASONE DIPROPIONATE\CALCIPOTRIENE MONOHYDRATE [Suspect]
     Active Substance: BETAMETHASONE DIPROPIONATE\CALCIPOTRIENE MONOHYDRATE
     Dosage: RARELY, QV
  85. BETAMETHASONE DIPROPIONATE\CALCIPOTRIENE MONOHYDRATE [Suspect]
     Active Substance: BETAMETHASONE DIPROPIONATE\CALCIPOTRIENE MONOHYDRATE
     Dosage: RARELY, QV
  86. BETAMETHASONE DIPROPIONATE\CALCIPOTRIENE MONOHYDRATE [Suspect]
     Active Substance: BETAMETHASONE DIPROPIONATE\CALCIPOTRIENE MONOHYDRATE
     Dosage: RARELY, QV
  87. BETAMETHASONE DIPROPIONATE\CALCIPOTRIENE MONOHYDRATE [Suspect]
     Active Substance: BETAMETHASONE DIPROPIONATE\CALCIPOTRIENE MONOHYDRATE
     Dosage: RARELY, QV
  88. BETAMETHASONE DIPROPIONATE\CALCIPOTRIENE MONOHYDRATE [Suspect]
     Active Substance: BETAMETHASONE DIPROPIONATE\CALCIPOTRIENE MONOHYDRATE
     Dosage: RARELY, QV
  89. BETAMETHASONE DIPROPIONATE\CALCIPOTRIENE MONOHYDRATE [Suspect]
     Active Substance: BETAMETHASONE DIPROPIONATE\CALCIPOTRIENE MONOHYDRATE
     Dosage: RARELY, QV
  90. BETAMETHASONE DIPROPIONATE\CALCIPOTRIENE MONOHYDRATE [Suspect]
     Active Substance: BETAMETHASONE DIPROPIONATE\CALCIPOTRIENE MONOHYDRATE
     Dosage: RARELY, QV
  91. BETAMETHASONE DIPROPIONATE\CALCIPOTRIENE MONOHYDRATE [Suspect]
     Active Substance: BETAMETHASONE DIPROPIONATE\CALCIPOTRIENE MONOHYDRATE
     Dosage: RARELY, QV
  92. BETAMETHASONE DIPROPIONATE\CALCIPOTRIENE MONOHYDRATE [Suspect]
     Active Substance: BETAMETHASONE DIPROPIONATE\CALCIPOTRIENE MONOHYDRATE
     Dosage: RARELY, QV
  93. BETAMETHASONE DIPROPIONATE\CALCIPOTRIENE MONOHYDRATE [Suspect]
     Active Substance: BETAMETHASONE DIPROPIONATE\CALCIPOTRIENE MONOHYDRATE
     Dosage: RARELY, QV
  94. BETAMETHASONE DIPROPIONATE\CALCIPOTRIENE MONOHYDRATE [Suspect]
     Active Substance: BETAMETHASONE DIPROPIONATE\CALCIPOTRIENE MONOHYDRATE
     Dosage: RARELY, QV
  95. BETAMETHASONE DIPROPIONATE\CALCIPOTRIENE MONOHYDRATE [Suspect]
     Active Substance: BETAMETHASONE DIPROPIONATE\CALCIPOTRIENE MONOHYDRATE
     Dosage: RARELY, QV
  96. BETAMETHASONE DIPROPIONATE\CALCIPOTRIENE MONOHYDRATE [Suspect]
     Active Substance: BETAMETHASONE DIPROPIONATE\CALCIPOTRIENE MONOHYDRATE
     Dosage: QD AS NEEDED (RARELY, QD)
  97. BETAMETHASONE DIPROPIONATE\CALCIPOTRIENE MONOHYDRATE [Suspect]
     Active Substance: BETAMETHASONE DIPROPIONATE\CALCIPOTRIENE MONOHYDRATE
     Dosage: QD (RARELY, QD)
  98. HYDROXYUREA [Suspect]
     Active Substance: HYDROXYUREA
     Indication: Psoriasis
  99. HYDROXYUREA [Suspect]
     Active Substance: HYDROXYUREA
  100. HYDROXYUREA [Suspect]
     Active Substance: HYDROXYUREA
  101. HYDROXYUREA [Suspect]
     Active Substance: HYDROXYUREA
  102. HYDROXYUREA [Suspect]
     Active Substance: HYDROXYUREA
  103. HYDROXYUREA [Suspect]
     Active Substance: HYDROXYUREA
  104. HYDROXYUREA [Suspect]
     Active Substance: HYDROXYUREA
  105. HYDROXYUREA [Suspect]
     Active Substance: HYDROXYUREA
  106. HYDROXYUREA [Suspect]
     Active Substance: HYDROXYUREA
  107. HYDROXYUREA [Suspect]
     Active Substance: HYDROXYUREA
  108. HUMIRA [Suspect]
     Active Substance: ADALIMUMAB
     Indication: Psoriasis
  109. HUMIRA [Suspect]
     Active Substance: ADALIMUMAB
  110. HUMIRA [Suspect]
     Active Substance: ADALIMUMAB
  111. HUMIRA [Suspect]
     Active Substance: ADALIMUMAB
  112. HUMIRA [Suspect]
     Active Substance: ADALIMUMAB
  113. HUMIRA [Suspect]
     Active Substance: ADALIMUMAB
  114. HUMIRA [Suspect]
     Active Substance: ADALIMUMAB
  115. HUMIRA [Suspect]
     Active Substance: ADALIMUMAB
  116. HUMIRA [Suspect]
     Active Substance: ADALIMUMAB
  117. HUMIRA [Suspect]
     Active Substance: ADALIMUMAB
  118. HUMIRA [Suspect]
     Active Substance: ADALIMUMAB
  119. STELARA [Suspect]
     Active Substance: USTEKINUMAB
     Indication: Psoriasis
  120. STELARA [Suspect]
     Active Substance: USTEKINUMAB
  121. STELARA [Suspect]
     Active Substance: USTEKINUMAB
  122. STELARA [Suspect]
     Active Substance: USTEKINUMAB
  123. STELARA [Suspect]
     Active Substance: USTEKINUMAB
  124. STELARA [Suspect]
     Active Substance: USTEKINUMAB
  125. STELARA [Suspect]
     Active Substance: USTEKINUMAB
  126. STELARA [Suspect]
     Active Substance: USTEKINUMAB
  127. STELARA [Suspect]
     Active Substance: USTEKINUMAB
  128. STELARA [Suspect]
     Active Substance: USTEKINUMAB
  129. STELARA [Suspect]
     Active Substance: USTEKINUMAB
  130. STELARA [Suspect]
     Active Substance: USTEKINUMAB
  131. STELARA [Suspect]
     Active Substance: USTEKINUMAB
  132. STELARA [Suspect]
     Active Substance: USTEKINUMAB
  133. STELARA [Suspect]
     Active Substance: USTEKINUMAB
  134. STELARA [Suspect]
     Active Substance: USTEKINUMAB
  135. STELARA [Suspect]
     Active Substance: USTEKINUMAB
  136. STELARA [Suspect]
     Active Substance: USTEKINUMAB
  137. STELARA [Suspect]
     Active Substance: USTEKINUMAB
  138. SECUKINUMAB [Suspect]
     Active Substance: SECUKINUMAB
     Indication: Product used for unknown indication
  139. SECUKINUMAB [Suspect]
     Active Substance: SECUKINUMAB
  140. SECUKINUMAB [Suspect]
     Active Substance: SECUKINUMAB
  141. SECUKINUMAB [Suspect]
     Active Substance: SECUKINUMAB
  142. SECUKINUMAB [Suspect]
     Active Substance: SECUKINUMAB
  143. SECUKINUMAB [Suspect]
     Active Substance: SECUKINUMAB
  144. SECUKINUMAB [Suspect]
     Active Substance: SECUKINUMAB
  145. ACETAMINOPHEN\CODEINE PHOSPHATE [Suspect]
     Active Substance: ACETAMINOPHEN\CODEINE PHOSPHATE
     Indication: Product used for unknown indication
     Dosage: 30/500MG
  146. ACETAMINOPHEN\CODEINE PHOSPHATE [Suspect]
     Active Substance: ACETAMINOPHEN\CODEINE PHOSPHATE
  147. DAIVOBET [Suspect]
     Active Substance: BETAMETHASONE DIPROPIONATE\CALCIPOTRIENE
     Indication: Product used for unknown indication
  148. DAIVOBET [Suspect]
     Active Substance: BETAMETHASONE DIPROPIONATE\CALCIPOTRIENE
     Dosage: PRN (RARELY, QV)
  149. DAIVOBET [Suspect]
     Active Substance: BETAMETHASONE DIPROPIONATE\CALCIPOTRIENE
     Dosage: PRN (RARELY, QV)
  150. BETAMETHASONE [Suspect]
     Active Substance: BETAMETHASONE\BETAMETHASONE DIPROPIONATE
     Indication: Product used for unknown indication
  151. BETAMETHASONE DIPROPIONATE [Suspect]
     Active Substance: BETAMETHASONE DIPROPIONATE
     Indication: Product used for unknown indication
  152. COSENTYX [Concomitant]
     Active Substance: SECUKINUMAB

REACTIONS (6)
  - Hypertension [Unknown]
  - Wheezing [Unknown]
  - Drug ineffective [Unknown]
  - Burning sensation [Unknown]
  - Rash pruritic [Unknown]
  - Pruritus genital [Unknown]
